FAERS Safety Report 7305321-0 (Version None)
Quarter: 2011Q1

REPORT INFORMATION
  Report Type: 
  Country: None (occurrence: None)
  Receive Date: 20110222
  Receipt Date: 20110208
  Transmission Date: 20110831
  Serious: Yes (Other)
  Sender: FDA-Public Use
  Company Number: PHHY2011TW01442

PATIENT
  Age: 60 Year
  Sex: Female

DRUGS (2)
  1. CLOZAPINE [Suspect]
     Indication: SCHIZOPHRENIA
     Dosage: 350 MG, QD
  2. CLOZAPINE [Suspect]
     Dosage: 200 MG, QD

REACTIONS (6)
  - PULMONARY MASS [None]
  - C-REACTIVE PROTEIN INCREASED [None]
  - LOBAR PNEUMONIA [None]
  - WEIGHT DECREASED [None]
  - LEUKOCYTOSIS [None]
  - MYOCLONUS [None]
